FAERS Safety Report 14743874 (Version 1)
Quarter: 2018Q2

REPORT INFORMATION
  Report Type: Spontaneous
  Country: US (occurrence: US)
  Receive Date: 20180410
  Receipt Date: 20180410
  Transmission Date: 20180711
  Serious: No
  Sender: FDA-Public Use
  Company Number: US-ASTRAZENECA-2018SE12771

PATIENT
  Age: 17874 Day
  Sex: Male
  Weight: 104.3 kg

DRUGS (1)
  1. BYDUREON BCISE [Suspect]
     Active Substance: EXENATIDE
     Indication: TYPE 2 DIABETES MELLITUS
     Dosage: 2.0MG UNKNOWN
     Route: 065
     Dates: start: 20180121

REACTIONS (3)
  - Underdose [Unknown]
  - Injection site reaction [Unknown]
  - Product quality issue [Unknown]

NARRATIVE: CASE EVENT DATE: 20180121
